FAERS Safety Report 23427254 (Version 1)
Quarter: 2024Q1

REPORT INFORMATION
  Report Type: Spontaneous
  Country: US (occurrence: US)
  Receive Date: 20240122
  Receipt Date: 20240122
  Transmission Date: 20240409
  Serious: No
  Sender: FDA-Public Use
  Company Number: US-PERRIGO-23US014913

PATIENT
  Age: 0 Year
  Sex: Male
  Weight: 13.152 kg

DRUGS (3)
  1. IBUPROFEN [Suspect]
     Active Substance: IBUPROFEN
     Indication: Pyrexia
     Dosage: 125 MG OR 135 MG, EVERY EIGHT HOURS
     Route: 048
     Dates: start: 20231221, end: 20231222
  2. ZYRTEC [Concomitant]
     Active Substance: CETIRIZINE HYDROCHLORIDE
     Indication: Hypersensitivity
     Dosage: UNK
     Route: 065
     Dates: start: 2022
  3. AMOXICILLIN [Concomitant]
     Active Substance: AMOXICILLIN
     Indication: Ear infection
     Dosage: UNK
     Route: 065
     Dates: start: 20231215, end: 20231225

REACTIONS (6)
  - Allergic reaction to excipient [Recovered/Resolved]
  - Eczema [Recovered/Resolved]
  - Erythema [Recovered/Resolved]
  - Swelling face [Recovered/Resolved]
  - Rash [Recovered/Resolved]
  - Product administered to patient of inappropriate age [Recovered/Resolved]

NARRATIVE: CASE EVENT DATE: 20231221
